FAERS Safety Report 5654072-7 (Version None)
Quarter: 2008Q1

REPORT INFORMATION
  Report Type: 
  Country: None (occurrence: None)
  Receive Date: 20080306
  Receipt Date: 20080226
  Transmission Date: 20080703
  Serious: Yes (Other)
  Sender: FDA-Public Use
  Company Number: GB-ABBOTT-07P-167-0356704-00

PATIENT
  Sex: Female
  Weight: 71 kg

DRUGS (8)
  1. HUMIRA [Suspect]
     Indication: RHEUMATOID ARTHRITIS
     Route: 058
     Dates: start: 20060324
  2. METHOTREXATE [Concomitant]
     Indication: DRUG USE FOR UNKNOWN INDICATION
  3. BENDROFLUMETHIAZIDE [Concomitant]
     Indication: DRUG USE FOR UNKNOWN INDICATION
  4. BRUFEN RETARD [Concomitant]
     Indication: DRUG USE FOR UNKNOWN INDICATION
  5. ESOMEPRAZOLE MAGNESIUM [Concomitant]
     Indication: DRUG USE FOR UNKNOWN INDICATION
  6. FELODIPINE [Concomitant]
     Indication: DRUG USE FOR UNKNOWN INDICATION
  7. FOLIC ACID [Concomitant]
     Indication: DRUG USE FOR UNKNOWN INDICATION
  8. LOSARTAN POTASSIUM [Concomitant]
     Indication: DRUG USE FOR UNKNOWN INDICATION

REACTIONS (2)
  - NIGHT SWEATS [None]
  - PULMONARY TUBERCULOSIS [None]
